FAERS Safety Report 8862631 (Version 1)
Quarter: 2012Q4

REPORT INFORMATION
  Report Type: 
  Country: IN (occurrence: IN)
  Receive Date: 20121026
  Receipt Date: 20121026
  Transmission Date: 20130627
  Serious: Yes (Hospitalization)
  Sender: FDA-Public Use
  Company Number: IN-GE HEALTHCARE MEDICAL DIAGNOSTICS-OMPQ-NO-1210S-1148

PATIENT
  Sex: Female
  Weight: 52 kg

DRUGS (1)
  1. OMNIPAQUE [Suspect]
     Indication: HEADACHE
     Route: 042
     Dates: start: 20121016, end: 20121016

REACTIONS (3)
  - Swelling face [Recovered/Resolved]
  - Hypotension [Recovered/Resolved]
  - Feeling hot [Recovered/Resolved]
